FAERS Safety Report 6267720-8 (Version None)
Quarter: 2009Q3

REPORT INFORMATION
  Report Type: 
  Country: None (occurrence: None)
  Receive Date: 20090714
  Receipt Date: 20090704
  Transmission Date: 20100115
  Serious: Yes (Other)
  Sender: FDA-Public Use
  Company Number: PHHY2009CA27667

PATIENT
  Sex: Male

DRUGS (1)
  1. ACLASTA [Suspect]
     Indication: OSTEOPOROSIS
     Dosage: UNK
     Dates: start: 20090629

REACTIONS (5)
  - BLOOD URINE PRESENT [None]
  - CHROMATURIA [None]
  - INFLUENZA [None]
  - PAIN [None]
  - PYREXIA [None]
